FAERS Safety Report 26012405 (Version 3)
Quarter: 2025Q4

REPORT INFORMATION
  Report Type: Spontaneous
  Country: CN (occurrence: CN)
  Receive Date: 20251107
  Receipt Date: 20251209
  Transmission Date: 20260118
  Serious: Yes (Other)
  Sender: PFIZER
  Company Number: CN-PFIZER INC-PV202500022336

PATIENT
  Age: 66 Year
  Sex: Male

DRUGS (9)
  1. XYNTHA [Suspect]
     Active Substance: MOROCTOCOG ALFA
     Dosage: UNK
     Dates: start: 20250218
  2. XYNTHA [Suspect]
     Active Substance: MOROCTOCOG ALFA
     Dosage: UNK
     Dates: start: 20250321
  3. XYNTHA [Suspect]
     Active Substance: MOROCTOCOG ALFA
     Dosage: UNK
     Dates: start: 20250425
  4. XYNTHA [Suspect]
     Active Substance: MOROCTOCOG ALFA
     Dosage: UNK
     Dates: start: 20250522
  5. XYNTHA [Suspect]
     Active Substance: MOROCTOCOG ALFA
     Dosage: UNK
     Dates: start: 20250624
  6. XYNTHA [Suspect]
     Active Substance: MOROCTOCOG ALFA
     Dosage: UNK
     Dates: start: 20250709
  7. XYNTHA [Suspect]
     Active Substance: MOROCTOCOG ALFA
     Dosage: UNK
  8. XYNTHA [Suspect]
     Active Substance: MOROCTOCOG ALFA
     Dosage: 2000 IU, 2X/WEEK
  9. XYNTHA [Suspect]
     Active Substance: MOROCTOCOG ALFA
     Dosage: 1000 IU, THREE TIMES A WEEK(TIW)
     Route: 041

REACTIONS (2)
  - Drug specific antibody present [Unknown]
  - Off label use [Unknown]

NARRATIVE: CASE EVENT DATE: 20250218
